FAERS Safety Report 7320068-2 (Version None)
Quarter: 2011Q1

REPORT INFORMATION
  Report Type: 
  Country: None (occurrence: None)
  Receive Date: 20110228
  Receipt Date: 20110218
  Transmission Date: 20110831
  Serious: Yes (Hospitalization)
  Sender: FDA-Public Use
  Company Number: VE-GENZYME-CERZ-1001787

PATIENT
  Sex: Female
  Weight: 15.7 kg

DRUGS (1)
  1. CEREZYME [Suspect]
     Indication: GAUCHER'S DISEASE
     Dosage: UNK
     Route: 042

REACTIONS (3)
  - HEPATOMEGALY [None]
  - PNEUMONIA [None]
  - SPLENOMEGALY [None]
